FAERS Safety Report 8141949-6 (Version None)
Quarter: 2012Q1

REPORT INFORMATION
  Report Type: 
  Country: None (occurrence: None)
  Receive Date: 20120216
  Receipt Date: 20120209
  Transmission Date: 20120608
  Serious: Yes (Other)
  Sender: FDA-Public Use
  Company Number: HR-GLAXOSMITHKLINE-B0778175A

PATIENT
  Sex: Female
  Weight: 66 kg

DRUGS (4)
  1. HYCAMTIN [Suspect]
     Indication: CERVIX CARCINOMA RECURRENT
     Dosage: 1.3MG PER DAY
     Route: 065
     Dates: start: 20111103
  2. CISPLATIN [Suspect]
     Indication: PRODUCT USED FOR UNKNOWN INDICATION
     Route: 065
     Dates: start: 20111103
  3. SYNOPEN [Suspect]
     Indication: PRODUCT USED FOR UNKNOWN INDICATION
     Route: 065
  4. DEXAMETHASONUM [Suspect]
     Indication: PRODUCT USED FOR UNKNOWN INDICATION
     Route: 065

REACTIONS (11)
  - GROIN PAIN [None]
  - ERYTHEMA [None]
  - ARTHRALGIA [None]
  - LYMPH NODE PAIN [None]
  - SCAB [None]
  - BACK PAIN [None]
  - RASH MACULO-PAPULAR [None]
  - HYPERSENSITIVITY [None]
  - PRURITUS [None]
  - HEART RATE INCREASED [None]
  - PELVIC PAIN [None]
